FAERS Safety Report 23804763 (Version 1)
Quarter: 2024Q2

REPORT INFORMATION
  Report Type: Spontaneous
  Country: JP (occurrence: JP)
  Receive Date: 20240501
  Receipt Date: 20240501
  Transmission Date: 20240716
  Serious: Yes (Other)
  Sender: FDA-Public Use
  Company Number: JP-BEH-2024171243

PATIENT
  Sex: Male

DRUGS (1)
  1. PRIVIGEN [Suspect]
     Active Substance: HUMAN IMMUNOGLOBULIN G
     Indication: Blood immunoglobulin G decreased
     Dosage: 2 VIALS, QMT
     Route: 041

REACTIONS (4)
  - Depressed level of consciousness [Unknown]
  - Somnolence [Unknown]
  - Malaise [Unknown]
  - Malaise [Unknown]
